FAERS Safety Report 7989641-2 (Version None)
Quarter: 2011Q4

REPORT INFORMATION
  Report Type: 
  Country: None (occurrence: None)
  Receive Date: 20111219
  Receipt Date: 20111213
  Transmission Date: 20120403
  Serious: Yes (Death)
  Sender: FDA-Public Use
  Company Number: US-CELGENEUS-163-21880-11121711

PATIENT
  Sex: Female

DRUGS (8)
  1. MEPRON [Concomitant]
     Route: 065
  2. REVLIMID [Suspect]
     Dosage: 10 MILLIGRAM
     Route: 048
     Dates: start: 20110611, end: 20111103
  3. ZOFRAN [Concomitant]
     Route: 065
  4. HYDROMORPHONE HCL [Concomitant]
     Route: 065
  5. GABAPENTIN [Concomitant]
     Route: 065
  6. OXYCONTIN [Concomitant]
     Route: 065
  7. NEUPOGEN [Concomitant]
     Route: 065
  8. BACTRIM [Concomitant]
     Route: 065

REACTIONS (1)
  - DEATH [None]
